FAERS Safety Report 16881264 (Version 1)
Quarter: 2019Q4

REPORT INFORMATION
  Report Type: Spontaneous
  Country: US (occurrence: US)
  Receive Date: 20190807
  Receipt Date: 20190807
  Transmission Date: 20200122
  Serious: No
  Sender: FDA-Public Use
  Company Number: None

PATIENT

DRUGS (2)
  1. INSULIN LISPRO [Suspect]
     Active Substance: INSULIN LISPRO
     Dosage: ?          OTHER STRENGTH:100 UNITS PER ML;?
  2. HUMALOG KWIKPEN [Suspect]
     Active Substance: INSULIN LISPRO
     Dosage: ?          OTHER STRENGTH:100 UNITS PER ML;?

REACTIONS (3)
  - Circumstance or information capable of leading to medication error [None]
  - Wrong drug [None]
  - Product packaging confusion [None]
